FAERS Safety Report 10347006 (Version 3)
Quarter: 2014Q3

REPORT INFORMATION
  Report Type: Spontaneous
  Country: DE (occurrence: DE)
  Receive Date: 20140729
  Receipt Date: 20140926
  Transmission Date: 20150326
  Serious: Yes (Other)
  Sender: FDA-Public Use
  Company Number: PHHY2014DE091815

PATIENT
  Sex: Male

DRUGS (2)
  1. EXFORGE HCT [Suspect]
     Active Substance: AMLODIPINE BESYLATE\HYDROCHLOROTHIAZIDE\VALSARTAN
     Dosage: 1 DF, UNK (VALS 160 MG, AMLO 10 MG, HCTZ 12.5 MG)
  2. ASPIRIN. [Concomitant]
     Active Substance: ASPIRIN
     Dosage: UNK UKN, UNK

REACTIONS (4)
  - Concomitant disease aggravated [Unknown]
  - Subdural haematoma [Unknown]
  - Head injury [Unknown]
  - Erectile dysfunction [Unknown]
